FAERS Safety Report 9939817 (Version 1)
Quarter: 2014Q1

REPORT INFORMATION
  Report Type: Report from Study
  Country: US (occurrence: US)
  Receive Date: 20140303
  Receipt Date: 20140303
  Transmission Date: 20141002
  Serious: Yes (Other)
  Sender: FDA-Public Use
  Company Number: US-ABBVIE-13P-163-1034916-00

PATIENT
  Age: 47 Year
  Sex: Male
  Weight: 78.09 kg

DRUGS (2)
  1. HUMIRA [Suspect]
     Indication: RHEUMATOID ARTHRITIS
     Route: 058
     Dates: start: 201209
  2. LEVAMIRE INSULIN [Concomitant]
     Indication: DIABETES MELLITUS

REACTIONS (7)
  - Fall [Recovering/Resolving]
  - Ligament injury [Recovering/Resolving]
  - Cartilage injury [Not Recovered/Not Resolved]
  - Arthralgia [Recovering/Resolving]
  - Joint swelling [Recovering/Resolving]
  - Gait disturbance [Recovering/Resolving]
  - Drug effect decreased [Not Recovered/Not Resolved]
